FAERS Safety Report 7550371-2 (Version None)
Quarter: 2011Q2

REPORT INFORMATION
  Report Type: 
  Country: None (occurrence: None)
  Receive Date: 20110615
  Receipt Date: 20110607
  Transmission Date: 20111010
  Serious: Yes (Other)
  Sender: FDA-Public Use
  Company Number: US-ROCHE-743275

PATIENT
  Sex: Male
  Weight: 65.8 kg

DRUGS (3)
  1. XOPENEX [Concomitant]
  2. ACCUTANE [Suspect]
     Route: 065
     Dates: start: 20050401, end: 20060401
  3. ACCUTANE [Suspect]
     Indication: ACNE
     Dosage: 80 MG FOR 2 MONTHS
     Route: 065
     Dates: start: 20040507, end: 20050101

REACTIONS (9)
  - BLOOD CHOLESTEROL INCREASED [None]
  - COLITIS ULCERATIVE [None]
  - CROHN'S DISEASE [None]
  - INFLAMMATORY BOWEL DISEASE [None]
  - GASTROINTESTINAL INJURY [None]
  - HEPATIC ENZYME INCREASED [None]
  - IRRITABLE BOWEL SYNDROME [None]
  - BLOOD TRIGLYCERIDES INCREASED [None]
  - GASTRIC ULCER [None]
